FAERS Safety Report 8827696 (Version 2)
Quarter: 2012Q4

REPORT INFORMATION
  Report Type: 
  Country: NO (occurrence: NO)
  Receive Date: 20121005
  Receipt Date: 20121016
  Transmission Date: 20130627
  Serious: Yes (Death, Hospitalization, Other)
  Sender: FDA-Public Use
  Company Number: NO-ABBOTT-12P-122-0990642-00

PATIENT
  Age: 63 Year
  Sex: Male

DRUGS (12)
  1. ZEMPLAR [Suspect]
     Indication: HYPERPARATHYROIDISM SECONDARY
     Route: 051
     Dates: start: 20120313, end: 20120409
  2. ZEMPLAR [Suspect]
     Dosage: changed to 1 microgram from 10-apr-2012
     Route: 051
     Dates: start: 20120410, end: 20120419
  3. RANIVIT [Concomitant]
     Indication: PRODUCT USED FOR UNKNOWN INDICATION
  4. ALBYL-E [Concomitant]
     Indication: PRODUCT USED FOR UNKNOWN INDICATION
  5. SIMVASTATIN [Concomitant]
     Indication: PRODUCT USED FOR UNKNOWN INDICATION
     Route: 048
  6. TRIATEC [Concomitant]
     Indication: PRODUCT USED FOR UNKNOWN INDICATION
     Route: 048
  7. ZANIDIP [Concomitant]
     Indication: PRODUCT USED FOR UNKNOWN INDICATION
  8. RESONIUM-CALCIUM [Concomitant]
     Indication: PRODUCT USED FOR UNKNOWN INDICATION
  9. SELO-ZOK [Concomitant]
     Indication: PRODUCT USED FOR UNKNOWN INDICATION
  10. ESOMEPRAZOLE [Concomitant]
     Indication: PRODUCT USED FOR UNKNOWN INDICATION
  11. RENVELA [Concomitant]
     Indication: PRODUCT USED FOR UNKNOWN INDICATION
  12. CALCIUM CARBONATE (TITRALAC) [Concomitant]
     Indication: PRODUCT USED FOR UNKNOWN INDICATION

REACTIONS (8)
  - Sudden cardiac death [Fatal]
  - Cardiac death [Fatal]
  - Arrhythmia [Fatal]
  - Chest discomfort [Fatal]
  - Gastroenteritis rotavirus [Unknown]
  - Abdominal infection [Unknown]
  - Condition aggravated [Unknown]
  - Sepsis [Unknown]
